FAERS Safety Report 14326610 (Version 1)
Quarter: 2017Q4

REPORT INFORMATION
  Report Type: Spontaneous
  Country: US (occurrence: US)
  Receive Date: 20171227
  Receipt Date: 20171227
  Transmission Date: 20180321
  Serious: No
  Sender: FDA-Public Use
  Company Number: PHEH2017US040471

PATIENT
  Sex: Female
  Weight: 61.22 kg

DRUGS (2)
  1. SYNTHROID [Concomitant]
     Active Substance: LEVOTHYROXINE SODIUM
     Indication: HYPOTHYROIDISM
     Dosage: 125 UG, QD
     Route: 065
     Dates: start: 1993
  2. BIMATOPROST. [Suspect]
     Active Substance: BIMATOPROST
     Indication: EYELASH THICKENING
     Dosage: 1 DRP, QD
     Route: 065
     Dates: start: 20171205

REACTIONS (4)
  - Erythema of eyelid [Unknown]
  - Ocular hyperaemia [Unknown]
  - Lip erythema [Unknown]
  - Eyelids pruritus [Unknown]
